FAERS Safety Report 24117949 (Version 1)
Quarter: 2024Q3

REPORT INFORMATION
  Report Type: Spontaneous
  Country: TW (occurrence: None)
  Receive Date: 20240722
  Receipt Date: 20240722
  Transmission Date: 20241017
  Serious: Yes (Other)
  Sender: ORION
  Company Number: TW-MLMSERVICE-20240709-PI127778-00218-1

PATIENT
  Age: 66 Year
  Sex: Male

DRUGS (4)
  1. METHOTREXATE [Suspect]
     Active Substance: METHOTREXATE
     Indication: Psoriasis
     Dates: start: 202007, end: 202110
  2. ELASOMERAN [Suspect]
     Active Substance: ELASOMERAN
     Indication: COVID-19 immunisation
     Dates: start: 20210713, end: 20210713
  3. MODERNA COVID-19 VACCINE [Suspect]
     Active Substance: ELASOMERAN
     Dates: start: 20211026, end: 20211026
  4. ADALIMUMAB [Suspect]
     Active Substance: ADALIMUMAB\ISOPROPYL ALCOHOL
     Indication: Psoriasis
     Dosage: MONOTHERAPY EVERY TWO WEEKS
     Dates: start: 201808, end: 2022

REACTIONS (1)
  - Angioimmunoblastic T-cell lymphoma [Unknown]

NARRATIVE: CASE EVENT DATE: 20220101
